FAERS Safety Report 19570713 (Version 2)
Quarter: 2021Q3

REPORT INFORMATION
  Report Type: Spontaneous
  Country: US (occurrence: US)
  Receive Date: 20210716
  Receipt Date: 20210817
  Transmission Date: 20211014
  Serious: No
  Sender: FDA-Public Use
  Company Number: US-ASTRAZENECA-2021A564916

PATIENT
  Age: 779 Month
  Sex: Male
  Weight: 98 kg

DRUGS (1)
  1. BYDUREON BCISE [Suspect]
     Active Substance: EXENATIDE
     Indication: HYPERTENSION
     Route: 058
     Dates: start: 202105

REACTIONS (4)
  - Device use issue [Unknown]
  - Device use issue [Unknown]
  - Needle issue [Unknown]
  - Wrong technique in product usage process [Unknown]

NARRATIVE: CASE EVENT DATE: 202105
